FAERS Safety Report 8097902-4 (Version None)
Quarter: 2012Q1

REPORT INFORMATION
  Report Type: 
  Country: None (occurrence: None)
  Receive Date: 20120128
  Receipt Date: 20110721
  Transmission Date: 20120608
  Serious: No
  Sender: FDA-Public Use
  Company Number: US-ABBOTT-11P-163-0840722-00

PATIENT
  Sex: Male
  Weight: 95.34 kg

DRUGS (2)
  1. UNKNOWN STERIOD [Concomitant]
     Indication: PSORIASIS
     Route: 061
     Dates: start: 20110201
  2. HUMIRA [Suspect]
     Indication: PSORIASIS
     Route: 058
     Dates: start: 20110509

REACTIONS (5)
  - SKIN TIGHTNESS [None]
  - DRUG INEFFECTIVE [None]
  - PRURITUS [None]
  - SKIN EXFOLIATION [None]
  - PSORIASIS [None]
